FAERS Safety Report 16059498 (Version 1)
Quarter: 2019Q1

REPORT INFORMATION
  Report Type: Spontaneous
  Country: GB (occurrence: GB)
  Receive Date: 20190311
  Receipt Date: 20190311
  Transmission Date: 20190418
  Serious: Yes (Other)
  Sender: FDA-Public Use
  Company Number: GB-MARKSANS PHARMA LIMITED-2063833

PATIENT
  Sex: Male

DRUGS (1)
  1. FLUOXETINE MOLECULE FROM UK MARKET [Suspect]
     Active Substance: FLUOXETINE HYDROCHLORIDE
     Route: 048

REACTIONS (1)
  - Panic attack [None]
